FAERS Safety Report 20670053 (Version 2)
Quarter: 2022Q2

REPORT INFORMATION
  Report Type: Report from Study
  Country: HU (occurrence: HU)
  Receive Date: 20220404
  Receipt Date: 20220502
  Transmission Date: 20220721
  Serious: Yes (Other)
  Sender: FDA-Public Use
  Company Number: HU-NOVARTISPH-NVSC2022HU074185

PATIENT
  Sex: Female

DRUGS (1)
  1. KISQALI [Suspect]
     Active Substance: RIBOCICLIB
     Indication: Product used for unknown indication
     Dosage: 600 MG (1X3 DAILY)
     Route: 048
     Dates: start: 20220223

REACTIONS (8)
  - Metastases to liver [Unknown]
  - Metastases to lymph nodes [Unknown]
  - Pulmonary mass [Unknown]
  - Hypersensitivity [Unknown]
  - Dyspnoea [Unknown]
  - Erythema [Unknown]
  - Nausea [Unknown]
  - Vomiting [Unknown]
